FAERS Safety Report 13206379 (Version 1)
Quarter: 2017Q1

REPORT INFORMATION
  Report Type: Spontaneous
  Country: US (occurrence: US)
  Receive Date: 20170209
  Receipt Date: 20170209
  Transmission Date: 20170428
  Serious: No
  Sender: FDA-Public Use
  Company Number: US-SA-2016SA198247

PATIENT
  Sex: Female

DRUGS (15)
  1. LOSARTAN POTASSIUM. [Concomitant]
     Active Substance: LOSARTAN POTASSIUM
     Dosage: STRENGTH: 50 MG
  2. CLONIDINE. [Concomitant]
     Active Substance: CLONIDINE
  3. GLIMEPIRIDE. [Concomitant]
     Active Substance: GLIMEPIRIDE
  4. PRALUENT [Suspect]
     Active Substance: ALIROCUMAB
     Indication: HYPERLIPIDAEMIA
     Route: 058
  5. ALIROCUMAB PREFILLED PEN [Concomitant]
     Active Substance: ALIROCUMAB
     Indication: HYPERLIPIDAEMIA
  6. ATENOLOL. [Concomitant]
     Active Substance: ATENOLOL
     Dosage: STRENGTH: 50 MG
  7. LEVOTHYROXINE. [Concomitant]
     Active Substance: LEVOTHYROXINE
     Dosage: STRENGTH: 88 MCG
  8. RESTASIS [Concomitant]
     Active Substance: CYCLOSPORINE
     Dosage: EMU 0.05%
  9. MECLIZINE [Concomitant]
     Active Substance: MECLIZINE HYDROCHLORIDE
     Dosage: STRENGTH: 25 MG
  10. NASONEX [Concomitant]
     Active Substance: MOMETASONE FUROATE
     Dosage: 50 MCG/AC
  11. AMOXICILLIN/CLAVULANATE POTASSIUM [Concomitant]
     Dosage: STRENGTH: 875 MG
  12. DIAZEPAM. [Concomitant]
     Active Substance: DIAZEPAM
  13. MONTELUKAST [Concomitant]
     Active Substance: MONTELUKAST SODIUM
     Dosage: 10 M
  14. DULOXETINE. [Concomitant]
     Active Substance: DULOXETINE
     Dosage: STRENGTH: 60 MG
  15. METRONIDAZOL [Concomitant]
     Active Substance: METRONIDAZOLE
     Dosage: LOT-0.75%

REACTIONS (1)
  - Onychoclasis [Not Recovered/Not Resolved]
